FAERS Safety Report 8274781-3 (Version None)
Quarter: 2012Q2

REPORT INFORMATION
  Report Type: 
  Country: None (occurrence: None)
  Receive Date: 20120411
  Receipt Date: 20120329
  Transmission Date: 20120825
  Serious: Yes (Hospitalization, Other)
  Sender: FDA-Public Use
  Company Number: US-ELI_LILLY_AND_COMPANY-US201204001066

PATIENT
  Age: 59 Year
  Sex: Female
  Weight: 61.224 kg

DRUGS (3)
  1. COUMADIN [Concomitant]
  2. ADCIRCA [Suspect]
  3. REMODULIN [Concomitant]
     Indication: COR PULMONALE CHRONIC
     Dosage: UNK UNK, UNKNOWN
     Route: 058
     Dates: start: 20091125

REACTIONS (3)
  - CARDIAC FAILURE [None]
  - FLUID RETENTION [None]
  - DIARRHOEA [None]
